FAERS Safety Report 4573014-9 (Version None)
Quarter: 2005Q1

REPORT INFORMATION
  Report Type: 
  Country: None (occurrence: None)
  Receive Date: 20050204
  Receipt Date: 20050126
  Transmission Date: 20050727
  Serious: Yes (Death)
  Sender: FDA-Public Use
  Company Number: GBWYE379628JAN05

PATIENT
  Age: 59 Year
  Sex: Female

DRUGS (2)
  1. PREMIQUE (CONJUGATED ESTROGENS/MEDROXYPROGESTERONE ACETATE, TABLET, 5 [Suspect]
     Indication: HORMONE REPLACEMENT THERAPY
     Dosage: 1 TABLET 1X PER 1 DAY
     Route: 048
     Dates: start: 20041119, end: 20041121
  2. ELLESTE-DUET (ESTRADIOL/NORETHISTERONE ACETATE) [Concomitant]

REACTIONS (2)
  - INTESTINAL INFARCTION [None]
  - MESENTERIC VEIN THROMBOSIS [None]
